FAERS Safety Report 5311579-X (Version None)
Quarter: 2007Q2

REPORT INFORMATION
  Report Type: 
  Country: None (occurrence: None)
  Receive Date: 20070426
  Receipt Date: 20070426
  Transmission Date: 20071010
  Serious: Yes (Other)
  Sender: FDA-Public Use
  Company Number: None

PATIENT
  Age: 73 Year
  Sex: Male
  Weight: 81.7 kg

DRUGS (11)
  1. TRAVOPROST OPHTHALMIC 0.004% [Suspect]
     Indication: GLAUCOMA
     Dosage: ONE DROP EACH EYE HS
     Dates: start: 20040401, end: 20060401
  2. ACARBOSE [Concomitant]
  3. ASPIRIN [Concomitant]
  4. DONEPEZIL HCL [Concomitant]
  5. FLUNISOLIDE [Concomitant]
  6. FOSINOPRIL SODIUM [Concomitant]
  7. GLIPIZIDE [Concomitant]
  8. HYDROCHLOROTHIAZIDE [Concomitant]
  9. ROSIGLITAZONE [Concomitant]
  10. SIMVASTATIN [Concomitant]
  11. YOHIMBINE [Concomitant]

REACTIONS (2)
  - LACRIMATION INCREASED [None]
  - VISUAL ACUITY REDUCED [None]
